FAERS Safety Report 25949114 (Version 1)
Quarter: 2025Q4

REPORT INFORMATION
  Report Type: Spontaneous
  Country: EU (occurrence: EU)
  Receive Date: 20251022
  Receipt Date: 20251022
  Transmission Date: 20260117
  Serious: Yes (Other)
  Sender: TEVA
  Company Number: None

PATIENT
  Age: 81 Year
  Sex: Female

DRUGS (9)
  1. PANTOPRAZOLE [Suspect]
     Active Substance: PANTOPRAZOLE
     Indication: Chronic gastritis
     Dosage: PANTOPRAZOLE TEVA
     Route: 048
     Dates: start: 20250214, end: 20250321
  2. Nolotil [Concomitant]
     Indication: Product used for unknown indication
     Dosage: SOS
     Route: 048
  3. FOSAVANCE [Concomitant]
     Active Substance: ALENDRONATE SODIUM\CHOLECALCIFEROL
     Indication: Product used for unknown indication
     Route: 048
  4. DAPAGLIFLOZIN [Concomitant]
     Active Substance: DAPAGLIFLOZIN
     Indication: Product used for unknown indication
     Route: 048
  5. PITAVASTATIN [Concomitant]
     Active Substance: PITAVASTATIN
     Indication: Product used for unknown indication
     Route: 065
  6. AZILSARTAN KAMEDOXOMIL\CHLORTHALIDONE [Concomitant]
     Active Substance: AZILSARTAN KAMEDOXOMIL\CHLORTHALIDONE
     Indication: Product used for unknown indication
     Route: 048
  7. LEVOTHYROXINE SODIUM [Concomitant]
     Active Substance: LEVOTHYROXINE SODIUM
     Indication: Product used for unknown indication
     Route: 048
  8. Daflon [Concomitant]
     Indication: Product used for unknown indication
     Dosage: 1000
     Route: 048
  9. Zilpen LP [Concomitant]
     Indication: Product used for unknown indication
     Dosage: SOS
     Route: 048

REACTIONS (7)
  - Choking [Recovered/Resolved]
  - Pruritus [Recovered/Resolved]
  - Dry mouth [Recovered/Resolved]
  - Myalgia [Recovered/Resolved]
  - Spinal pain [Recovered/Resolved]
  - Vision blurred [Recovered/Resolved]
  - Hyperhidrosis [Recovered/Resolved]

NARRATIVE: CASE EVENT DATE: 20250301
